FAERS Safety Report 17019309 (Version 2)
Quarter: 2021Q4

REPORT INFORMATION
  Report Type: Spontaneous
  Country: US (occurrence: US)
  Receive Date: 20191112
  Receipt Date: 20211128
  Transmission Date: 20220303
  Serious: Yes (Hospitalization, Other)
  Sender: FDA-Public Use
  Company Number: US-SUN PHARMACEUTICAL INDUSTRIES LTD-2019R1-226455

PATIENT
  Age: 15 Year
  Sex: Male

DRUGS (1)
  1. DILTIAZEM [Suspect]
     Active Substance: DILTIAZEM
     Indication: Product used for unknown indication
     Dosage: 2500 MILLIGRAM
     Route: 065

REACTIONS (14)
  - Intentional overdose [Unknown]
  - Sinus tachycardia [Unknown]
  - Lactic acidosis [Unknown]
  - Hypotension [Unknown]
  - Mental status changes [Unknown]
  - Respiratory failure [Unknown]
  - Seizure [Unknown]
  - Arrhythmia [Unknown]
  - Cardiac arrest [Unknown]
  - Peripheral ischaemia [Unknown]
  - Rhabdomyolysis [Unknown]
  - Hyperkalaemia [Unknown]
  - Cardioplegia [Unknown]
  - Acute kidney injury [Unknown]
